FAERS Safety Report 5265621-5 (Version None)
Quarter: 2007Q1

REPORT INFORMATION
  Report Type: 
  Country: None (occurrence: None)
  Receive Date: 20061213
  Receipt Date: 20020703
  Transmission Date: 20070707
  Serious: Yes (Hospitalization)
  Sender: FDA-Public Use
  Company Number: 2002UW09248

PATIENT
  Age: 37 Year
  Sex: Female

DRUGS (1)
  1. TAMOXIFEN [Suspect]
     Dosage: 20 MG PO
     Route: 048
     Dates: start: 20020301

REACTIONS (1)
  - GRAND MAL CONVULSION [None]
